FAERS Safety Report 16404552 (Version 1)
Quarter: 2019Q2

REPORT INFORMATION
  Report Type: Spontaneous
  Country: US (occurrence: US)
  Receive Date: 20190607
  Receipt Date: 20190607
  Transmission Date: 20190711
  Serious: No
  Sender: FDA-Public Use
  Company Number: US-PFIZER INC-2019244151

PATIENT
  Age: 60 Year
  Weight: 72.56 kg

DRUGS (1)
  1. PACLITAXEL. [Suspect]
     Active Substance: PACLITAXEL
     Dosage: UNK, WEEKLY [12 TREATMENTS OF PACLITAXEL]

REACTIONS (10)
  - Cough [Unknown]
  - Gingival bleeding [Unknown]
  - Ageusia [Unknown]
  - Arthralgia [Unknown]
  - Nasopharyngitis [Unknown]
  - Liver disorder [Unknown]
  - Gait disturbance [Unknown]
  - White blood cell count decreased [Unknown]
  - Anaemia [Unknown]
  - Alopecia [Unknown]
